FAERS Safety Report 22300121 (Version 1)
Quarter: 2023Q2

REPORT INFORMATION
  Report Type: Report from Study
  Country: US (occurrence: US)
  Receive Date: 20230509
  Receipt Date: 20230509
  Transmission Date: 20230722
  Serious: Yes (Other)
  Sender: FDA-Public Use
  Company Number: US-ALXN-A202302894

PATIENT
  Sex: Female

DRUGS (1)
  1. STRENSIQ [Suspect]
     Active Substance: ASFOTASE ALFA
     Indication: Hypophosphatasia
     Dosage: UNK
     Route: 065

REACTIONS (13)
  - Dizziness [Recovered/Resolved]
  - Ear pain [Recovered/Resolved]
  - Tinnitus [Recovered/Resolved]
  - Osteosclerosis [Recovered/Resolved]
  - Conductive deafness [Unknown]
  - Hypoacusis [Unknown]
  - Weight increased [Unknown]
  - Injection site pain [Unknown]
  - Injection site swelling [Unknown]
  - Injection site bruising [Unknown]
  - Injection site erythema [Unknown]
  - Injection site pruritus [Unknown]
  - Injection site urticaria [Unknown]
